FAERS Safety Report 6821516-4 (Version None)
Quarter: 2010Q3

REPORT INFORMATION
  Report Type: 
  Country: None (occurrence: None)
  Receive Date: 20100707
  Receipt Date: 20081117
  Transmission Date: 20110219
  Serious: No
  Sender: FDA-Public Use
  Company Number: US-PFIZER INC-2008097994

PATIENT
  Sex: Female
  Weight: 65.909 kg

DRUGS (1)
  1. ZOLOFT [Suspect]
     Indication: PANIC ATTACK
     Dates: start: 20080807, end: 20081115

REACTIONS (2)
  - DRUG SCREEN POSITIVE [None]
  - NIGHTMARE [None]
